FAERS Safety Report 7504947-9 (Version None)
Quarter: 2011Q2

REPORT INFORMATION
  Report Type: 
  Country: None (occurrence: None)
  Receive Date: 20110526
  Receipt Date: 20110517
  Transmission Date: 20111010
  Serious: Yes (Hospitalization)
  Sender: FDA-Public Use
  Company Number: US-BIOGENIDEC-2011BI018984

PATIENT
  Age: 71 Year
  Sex: Female

DRUGS (3)
  1. AVONEX [Suspect]
     Indication: MULTIPLE SCLEROSIS
     Route: 030
     Dates: start: 20070101
  2. AVONEX [Suspect]
     Route: 030
     Dates: start: 20050301
  3. AVONEX [Suspect]
     Route: 030
     Dates: start: 19990301, end: 20010901

REACTIONS (3)
  - FALL [None]
  - PAIN [None]
  - HIP FRACTURE [None]
